FAERS Safety Report 5131313-6 (Version None)
Quarter: 2006Q4

REPORT INFORMATION
  Report Type: 
  Country: None (occurrence: None)
  Receive Date: 20061020
  Receipt Date: 20061002
  Transmission Date: 20070319
  Serious: Yes (Other)
  Sender: FDA-Public Use
  Company Number: PHMT2006CA01901

PATIENT
  Age: 55 Year
  Sex: Female

DRUGS (8)
  1. ZELNORM [Suspect]
     Indication: IRRITABLE BOWEL SYNDROME
     Dosage: 6 MG, UNK
     Route: 048
     Dates: start: 20060929, end: 20060929
  2. ZELNORM [Suspect]
     Dosage: 3 MG, IN THE MORNING
     Route: 048
     Dates: start: 20060930, end: 20060930
  3. ZELNORM [Suspect]
     Dosage: 1/4 TABLET BID
     Route: 048
     Dates: start: 20061001
  4. TORADOL [Concomitant]
     Dosage: 10 MG, Q6H
  5. ATORVASTATIN CALCIUM [Concomitant]
     Dosage: 10 MG, QD
  6. PROVERA [Concomitant]
     Dosage: 5 MG, QD
  7. ESTROGEL [Concomitant]
     Dosage: 0.06 %, QD
  8. MICARDIS HCT [Concomitant]
     Dosage: 80/12.5

REACTIONS (8)
  - ABDOMINAL PAIN [None]
  - CHEST PAIN [None]
  - DIARRHOEA [None]
  - DIZZINESS [None]
  - DYSPNOEA [None]
  - HEADACHE [None]
  - INFLUENZA LIKE ILLNESS [None]
  - NAUSEA [None]
